FAERS Safety Report 8273650-2 (Version None)
Quarter: 2012Q2

REPORT INFORMATION
  Report Type: 
  Country: None (occurrence: None)
  Receive Date: 20120411
  Receipt Date: 20120217
  Transmission Date: 20120825
  Serious: No
  Sender: FDA-Public Use
  Company Number: US-TEVA-323124USA

PATIENT
  Sex: Female
  Weight: 64.468 kg

DRUGS (10)
  1. SIMVASTATIN [Concomitant]
     Indication: BLOOD CHOLESTEROL
     Dosage: 10 MILLIGRAM;
     Route: 048
  2. LEVOTHYROXINE SODIUM [Concomitant]
     Indication: THYROID DISORDER
     Dosage: .75 MILLIGRAM;
     Route: 048
  3. NUVIGIL [Suspect]
     Indication: NARCOLEPSY
     Route: 048
     Dates: start: 20120101, end: 20120101
  4. OXYMORPHONE HYDROCHLORIDE [Concomitant]
     Indication: NECK PAIN
  5. MORPHINE [Concomitant]
     Indication: NECK PAIN
  6. OMEPRAZOLE [Concomitant]
     Indication: DYSPEPSIA
     Dosage: 40 MILLIGRAM;
     Route: 048
  7. MORPHINE [Concomitant]
     Indication: BACK PAIN
     Route: 037
  8. HYDROXYZINE [Concomitant]
     Dosage: 400 MILLIGRAM;
     Route: 048
     Dates: start: 20110101
  9. OXYMORPHONE HYDROCHLORIDE [Concomitant]
     Indication: BACK PAIN
     Dosage: 30 MILLIGRAM;
     Route: 048
     Dates: start: 19970101
  10. BUPROPION HCL [Concomitant]
     Indication: DEPRESSION
     Dosage: 300 MILLIGRAM;
     Route: 048

REACTIONS (1)
  - DRUG INEFFECTIVE [None]
